FAERS Safety Report 25715314 (Version 2)
Quarter: 2025Q4

REPORT INFORMATION
  Report Type: Report from Study
  Country: US (occurrence: US)
  Receive Date: 20250822
  Receipt Date: 20251120
  Transmission Date: 20260118
  Serious: Yes (Disabling, Other)
  Sender: AMGEN
  Company Number: US-AMGEN-USASL2024224076

PATIENT
  Age: 49 Year
  Sex: Male

DRUGS (26)
  1. TEPEZZA [Suspect]
     Active Substance: TEPROTUMUMAB-TRBW
     Indication: Toxic goitre
     Dosage: 910 MILLIGRAM (FIRST DOSE) (10 MILLIGRAM/KILOGRAM, Q3WK (FIRST NFUSION) 20 MG/KG 2ND-8TH DOSE (FIRST
     Route: 040
     Dates: start: 20241111, end: 20241111
  2. TEPEZZA [Suspect]
     Active Substance: TEPROTUMUMAB-TRBW
     Indication: Endocrine ophthalmopathy
  3. TEPEZZA [Suspect]
     Active Substance: TEPROTUMUMAB-TRBW
     Indication: Graves^ disease
  4. FLEXERIL [Concomitant]
     Active Substance: CYCLOBENZAPRINE HYDROCHLORIDE
     Indication: Myalgia
     Dosage: UNK UNK, TID (0.5-1 TABLET BY MOUTH 3 TIMES DAILY AS NEEDED)
     Route: 048
     Dates: start: 20220207
  5. DECADRON [Concomitant]
     Active Substance: DEXAMETHASONE
     Indication: Nausea
     Dosage: 1 MILLILITER, AS NECESSARY  (4 MG/ML INJECTION)
     Route: 058
     Dates: start: 20240124
  6. DECADRON [Concomitant]
     Active Substance: DEXAMETHASONE
     Indication: Vomiting
  7. DECADRON [Concomitant]
     Active Substance: DEXAMETHASONE
     Indication: Adrenal insufficiency
  8. FLORINEF ACETATE [Concomitant]
     Active Substance: FLUDROCORTISONE ACETATE
     Dosage: 1 DOSAGE FORM, QD (0.1 MG TABLET)
     Route: 048
     Dates: start: 20220513
  9. FLONASE [Concomitant]
     Active Substance: FLUTICASONE PROPIONATE
     Dosage: UNK UNK, QD (50 MCG/NASAL SPRAY, 2 SPRAYS BY NASAL ROUTE DAILY DISPENSE MEDICINE)
     Route: 045
     Dates: start: 20230601
  10. LOPID [Concomitant]
     Active Substance: GEMFIBROZIL
     Dosage: 600 MILLIGRAM, BID
     Route: 048
     Dates: start: 20240124
  11. NIZORAL [Concomitant]
     Active Substance: KETOCONAZOLE
     Dosage: UNK, QD (APPLY TO THE AFFECTED AREA(S) OF FACE) (2% CREAM)
     Dates: start: 20230510
  12. SYNTHROID [Concomitant]
     Active Substance: LEVOTHYROXINE SODIUM
     Dosage: 88 MICROGRAM, QD
     Route: 048
     Dates: start: 20220801
  13. DELTASONE [Concomitant]
     Active Substance: PREDNISONE
     Indication: Addison^s disease
     Dosage: 7.5 MILLIGRAM, QD (1.5 TABLETS)
     Route: 048
     Dates: start: 20220414
  14. FLOMAX [Concomitant]
     Active Substance: TAMSULOSIN HYDROCHLORIDE
     Dosage: 1 DOSAGE FORM, QD (0.4 MG CAPS)
     Route: 048
     Dates: start: 20190510
  15. FLOMAX [Concomitant]
     Active Substance: TAMSULOSIN HYDROCHLORIDE
     Dosage: 1 DOSAGE FORM, QD (0.4 MG CAPS)
     Route: 048
     Dates: start: 20220718
  16. SYSTANE (HYPROMELLOSE 2910 (4000 MPA.S)) [Concomitant]
     Active Substance: HYPROMELLOSE 2910 (4000 MPA.S)
     Dosage: UNK UNK, AS NECESSARY  (1 TO 3 PER DAY PRN) (3-6X/DAY PRN)
  17. PREDNISOLONE [Concomitant]
     Active Substance: PREDNISOLONE
     Dosage: UNK (5 MG TABLET) (1.5 TABLET BY ORAL ROUTE EVERY DAY WITH FOOD )
     Route: 048
  18. BACTROBAN [Concomitant]
     Active Substance: MUPIROCIN CALCIUM
     Dosage: UNK, TID
     Route: 061
  19. OXYCODONE [Concomitant]
     Active Substance: OXYCODONE
  20. SODIUM CHLORIDE [Concomitant]
     Active Substance: SODIUM CHLORIDE
     Indication: Anaphylactic reaction
     Dosage: UNK (2-3 ML) (PRE/POST PIV USE)
     Route: 040
     Dates: start: 20241111
  21. EPINEPHRINE [Concomitant]
     Active Substance: EPINEPHRINE
     Indication: Anaphylactic reaction
     Dosage: 0.3 MILLIGRAM (PRN MAY REPEAT IN 5 TO 15 MIN)
     Route: 030
     Dates: start: 20241111
  22. BENADRYL [Concomitant]
     Active Substance: DIPHENHYDRAMINE HYDROCHLORIDE
     Indication: Anaphylactic reaction
     Dosage: 25 MILLIGRAM (PRN-MAY REPEAT 1 IN 15 MIN)
     Route: 040
     Dates: start: 20241111
  23. SODIUM CHLORIDE [Concomitant]
     Active Substance: SODIUM CHLORIDE
     Dosage: UNK (0.9% 100 ML)
     Route: 065
     Dates: start: 20241111
  24. SODIUM CHLORIDE [Concomitant]
     Active Substance: SODIUM CHLORIDE
     Dosage: UNK (0.9% 100 ML)
     Route: 065
  25. SODIUM CHLORIDE [Concomitant]
     Active Substance: SODIUM CHLORIDE
     Dosage: UNK (0.9% 100 ML)
     Route: 065
  26. Artificial tears [Concomitant]
     Indication: Dry eye
     Dosage: UNK
     Route: 065

REACTIONS (14)
  - Deafness permanent [Not Recovered/Not Resolved]
  - Suicidal ideation [Unknown]
  - Endocrine ophthalmopathy [Unknown]
  - Graves^ disease [Unknown]
  - Confusional state [Unknown]
  - Fear [Unknown]
  - Insomnia [Unknown]
  - Fatigue [Unknown]
  - Pain [Unknown]
  - Emotional distress [Unknown]
  - Anxiety [Unknown]
  - Discomfort [Unknown]
  - Injury [Unknown]
  - Blood pressure increased [Unknown]

NARRATIVE: CASE EVENT DATE: 20241111
